FAERS Safety Report 7445279-7 (Version None)
Quarter: 2011Q2

REPORT INFORMATION
  Report Type: 
  Country: None (occurrence: None)
  Receive Date: 20110429
  Receipt Date: 20110428
  Transmission Date: 20111010
  Serious: Yes (Hospitalization, Other)
  Sender: FDA-Public Use
  Company Number: PH-JNJFOC-20080202726

PATIENT
  Sex: Female
  Weight: 69 kg

DRUGS (26)
  1. GOLIMUMAB [Suspect]
     Dosage: WEEK 8
     Route: 058
  2. METHOTREXATE [Suspect]
     Route: 048
  3. GOLIMUMAB [Suspect]
     Dosage: WEEK 0
     Route: 058
  4. METHOTREXATE [Suspect]
     Route: 048
  5. VASCOR [Concomitant]
     Route: 048
  6. DIFFLAM [Concomitant]
     Route: 048
  7. METHOTREXATE [Suspect]
     Route: 048
  8. PREDNISONE [Concomitant]
     Route: 048
  9. CALVIT [Concomitant]
     Route: 048
  10. GOLIMUMAB [Suspect]
     Indication: RHEUMATOID ARTHRITIS
     Dosage: WEEK 12
     Route: 058
  11. GOLIMUMAB [Suspect]
     Dosage: WEEK 20
     Route: 058
  12. GOLIMUMAB [Suspect]
     Dosage: WEEK 40
     Route: 058
  13. GOLIMUMAB [Suspect]
     Dosage: WEEK 36
     Route: 058
  14. GOLIMUMAB [Suspect]
     Dosage: WEEK 32
     Route: 058
  15. GOLIMUMAB [Suspect]
     Dosage: WEEK 16
     Route: 058
  16. METHOTREXATE [Suspect]
     Route: 048
  17. SIMVASTATIN [Concomitant]
  18. FOLIC ACID [Concomitant]
     Route: 048
  19. TRAMADOL [Concomitant]
     Route: 048
  20. GOLIMUMAB [Suspect]
     Dosage: WEEK 24
     Route: 058
  21. METHOTREXATE [Suspect]
     Indication: RHEUMATOID ARTHRITIS
     Route: 048
  22. METHOTREXATE [Suspect]
     Route: 048
  23. GOLIMUMAB [Suspect]
     Dosage: WEEK 4
     Route: 058
  24. METHOTREXATE [Suspect]
     Route: 048
  25. GOLIMUMAB [Suspect]
     Dosage: WEEK 28
     Route: 058
  26. BACTIDOL GARGLE [Concomitant]
     Route: 048

REACTIONS (2)
  - PULMONARY TUBERCULOSIS [None]
  - PLEURAL EFFUSION [None]
